FAERS Safety Report 5477252-2 (Version None)
Quarter: 2007Q4

REPORT INFORMATION
  Report Type: 
  Country: None (occurrence: None)
  Receive Date: 20071004
  Receipt Date: 20070924
  Transmission Date: 20080405
  Serious: Yes (Other)
  Sender: FDA-Public Use
  Company Number: US-ELI_LILLY_AND_COMPANY-US200709001891

PATIENT
  Sex: Female
  Weight: 69.841 kg

DRUGS (11)
  1. FORTEO [Suspect]
     Dosage: UNK D/F, UNK
     Dates: start: 20060703
  2. FORTEO [Suspect]
     Dosage: 20 UG, DAILY (1/D)
     Route: 058
  3. SYNTHROID [Concomitant]
  4. PLAQUENIL [Concomitant]
     Dosage: 20 MG, DAILY (1/D)
     Route: 048
  5. PLAQUENIL [Concomitant]
     Dosage: 400 MG, DAILY (1/D)
     Route: 048
  6. DYAZIDE [Concomitant]
  7. TYLENOL                                 /SCH/ [Concomitant]
     Dosage: UNK, AS NEEDED
  8. CALCIUM [Concomitant]
     Indication: SUPPLEMENTATION THERAPY
     Dosage: UNK, 3/D
  9. ADVIL                              /00109201/ [Concomitant]
     Dosage: UNK, AS NEEDED
  10. PRILOSEC [Concomitant]
     Indication: DYSPEPSIA
  11. ARTIFICIAL TEARS [Concomitant]

REACTIONS (13)
  - ANION GAP DECREASED [None]
  - BLOOD GLUCOSE DECREASED [None]
  - BLOOD POTASSIUM DECREASED [None]
  - BLOOD SODIUM DECREASED [None]
  - LYMPHOCYTE COUNT DECREASED [None]
  - MEAN CELL HAEMOGLOBIN CONCENTRATION INCREASED [None]
  - MUSCULOSKELETAL DISCOMFORT [None]
  - NEUTROPHIL COUNT INCREASED [None]
  - PLATELET COUNT INCREASED [None]
  - POLYARTHRITIS [None]
  - PROTEINURIA [None]
  - RHEUMATOID ARTHRITIS [None]
  - VITAMIN D DECREASED [None]
